FAERS Safety Report 20491171 (Version 2)
Quarter: 2022Q1

REPORT INFORMATION
  Report Type: Report from Study
  Country: US (occurrence: US)
  Receive Date: 20220218
  Receipt Date: 20220301
  Transmission Date: 20220423
  Serious: Yes (Hospitalization, Other)
  Sender: FDA-Public Use
  Company Number: US-TAKEDA-2022TUS010416

PATIENT
  Age: 23 Year
  Sex: Male
  Weight: 91 kg

DRUGS (26)
  1. PARATHYROID HORMONE [Suspect]
     Active Substance: PARATHYROID HORMONE
     Indication: Hypoparathyroidism
     Dosage: 50 MICROGRAM, QD
     Route: 065
     Dates: start: 20150718, end: 20190912
  2. PARATHYROID HORMONE [Suspect]
     Active Substance: PARATHYROID HORMONE
     Indication: Hypoparathyroidism
     Dosage: 50 MICROGRAM, QD
     Route: 065
     Dates: start: 20150718, end: 20190912
  3. PARATHYROID HORMONE [Suspect]
     Active Substance: PARATHYROID HORMONE
     Indication: Hypoparathyroidism
     Dosage: 50 MICROGRAM, QD
     Route: 065
     Dates: start: 20150718, end: 20190912
  4. LORAZEPAM [Concomitant]
     Active Substance: LORAZEPAM
     Indication: Schizophrenia
     Dosage: UNK
     Route: 048
     Dates: start: 20140124
  5. ABILIFY [Concomitant]
     Active Substance: ARIPIPRAZOLE
     Indication: Constipation
     Dosage: UNK
     Route: 048
     Dates: start: 20140702
  6. ACETAMINOPHEN [Concomitant]
     Active Substance: ACETAMINOPHEN
     Indication: Product used for unknown indication
     Dosage: UNK
     Route: 048
     Dates: start: 20150612
  7. BISACODYL VP [Concomitant]
     Indication: Constipation
     Dosage: UNK
     Route: 048
     Dates: start: 20150612
  8. MAGNESIUM HYDROXIDE [Concomitant]
     Active Substance: MAGNESIUM HYDROXIDE
     Indication: Constipation
     Dosage: UNK
     Route: 048
     Dates: start: 20150612
  9. BENZTROPINE [Concomitant]
     Active Substance: BENZTROPINE
     Indication: Product used for unknown indication
     Dosage: UNK
     Route: 048
     Dates: start: 20151030
  10. FERROUS SULFATE [Concomitant]
     Active Substance: FERROUS SULFATE
     Indication: Chronic kidney disease
     Dosage: UNK
     Route: 048
     Dates: start: 20151030
  11. DIVALPROEX SODIUM [Concomitant]
     Active Substance: DIVALPROEX SODIUM
     Indication: Seizure
     Dosage: UNK
     Route: 048
     Dates: start: 20160503
  12. BACITRACIN\NEOMYCIN\POLYMYXIN B SULFATE [Concomitant]
     Active Substance: BACITRACIN\NEOMYCIN\POLYMYXIN B SULFATE
     Indication: Product used for unknown indication
     Dosage: UNK
     Route: 048
     Dates: start: 20160831
  13. HYDROCORTISONE [Concomitant]
     Active Substance: HYDROCORTISONE
     Indication: Product used for unknown indication
     Dosage: UNK
     Route: 048
     Dates: start: 20160831
  14. VORTIOXETINE [Concomitant]
     Active Substance: VORTIOXETINE
     Indication: Product used for unknown indication
     Dosage: UNK
     Route: 048
     Dates: start: 20170824
  15. LOPERAMIDE [Concomitant]
     Active Substance: LOPERAMIDE
     Indication: Diarrhoea
     Dosage: UNK
     Route: 048
     Dates: start: 20170426
  16. DEXTROMETHORPHAN HYDROBROMIDE\GUAIFENESIN [Concomitant]
     Active Substance: DEXTROMETHORPHAN HYDROBROMIDE\GUAIFENESIN
     Indication: Product used for unknown indication
     Dosage: UNK
     Route: 048
     Dates: start: 20170426
  17. BISMUTH SUBSALICYLATE [Concomitant]
     Active Substance: BISMUTH SUBSALICYLATE
     Indication: Diarrhoea
     Dosage: UNK
     Route: 048
     Dates: start: 20170426
  18. BUPROPION [Concomitant]
     Active Substance: BUPROPION
     Indication: Product used for unknown indication
  19. POLYVINYL ALCOHOL [Concomitant]
     Active Substance: POLYVINYL ALCOHOL
     Indication: Product used for unknown indication
     Dosage: UNK
     Route: 061
     Dates: start: 20180808
  20. PSEUDOEPHEDRINE [Concomitant]
     Active Substance: PSEUDOEPHEDRINE
     Indication: Product used for unknown indication
     Dosage: UNK
     Route: 048
     Dates: start: 20170426
  21. MAGNESIUM OXIDE [Concomitant]
     Active Substance: MAGNESIUM OXIDE
     Indication: Seizure
     Dosage: UNK
     Route: 048
     Dates: start: 20210313
  22. PERMETHRINE [Concomitant]
     Indication: Acarodermatitis
     Dosage: UNK
     Dates: start: 20210313
  23. TRIAMCINOLONE [Concomitant]
     Active Substance: TRIAMCINOLONE
     Indication: Acarodermatitis
     Dosage: UNK
     Route: 061
     Dates: start: 20210313
  24. DECADRON [Concomitant]
     Active Substance: DEXAMETHASONE
     Indication: Pericardial effusion
     Dosage: UNK
     Route: 048
     Dates: start: 20220207, end: 20220207
  25. LASIX [Concomitant]
     Active Substance: FUROSEMIDE
     Indication: Pericardial effusion
     Dosage: UNK
     Route: 042
     Dates: start: 20220207
  26. AMOXICILLIN\CLAVULANIC ACID [Concomitant]
     Active Substance: AMOXICILLIN\CLAVULANIC ACID
     Indication: Acarodermatitis
     Dosage: UNK
     Route: 048
     Dates: start: 20210313

REACTIONS (1)
  - Pericardial effusion [Recovered/Resolved]

NARRATIVE: CASE EVENT DATE: 20220207
